FAERS Safety Report 7790944-5 (Version None)
Quarter: 2011Q3

REPORT INFORMATION
  Report Type: 
  Country: None (occurrence: None)
  Receive Date: 20110930
  Receipt Date: 20110930
  Transmission Date: 20111222
  Serious: Yes (Hospitalization)
  Sender: FDA-Public Use
  Company Number: None

PATIENT
  Sex: Male

DRUGS (1)
  1. PRAMIPEXOLE DIHYDROCHLORIDE [Suspect]
     Dosage: 1 1/2 TABS
     Route: 048

REACTIONS (3)
  - SEDATION [None]
  - UNRESPONSIVE TO STIMULI [None]
  - PRODUCT SUBSTITUTION ISSUE [None]
